FAERS Safety Report 7067991-4 (Version None)
Quarter: 2010Q4

REPORT INFORMATION
  Report Type: 
  Country: None (occurrence: None)
  Receive Date: 20101027
  Receipt Date: 20101027
  Transmission Date: 20110411
  Serious: No
  Sender: FDA-Public Use
  Company Number: None

PATIENT
  Age: 9 Month
  Sex: Female
  Weight: 6.804 kg

DRUGS (1)
  1. HYLANDS HOMEOPATHIC TEETHING TABLETS [Suspect]
     Indication: TEETHING
     Dosage: 2 EVERY 4 HOURS PO
     Route: 048
     Dates: start: 20100401, end: 20101023

REACTIONS (6)
  - DRUG INTOLERANCE [None]
  - DYSPNOEA [None]
  - FATIGUE [None]
  - HYPERHIDROSIS [None]
  - HYPERSOMNIA [None]
  - NASOPHARYNGITIS [None]
